FAERS Safety Report 5218523-4 (Version None)
Quarter: 2007Q1

REPORT INFORMATION
  Report Type: 
  Country: None (occurrence: None)
  Receive Date: 20061130
  Receipt Date: 20060607
  Transmission Date: 20070707
  Serious: Yes (Other)
  Sender: FDA-Public Use
  Company Number: US200606002020

PATIENT
  Age: 64 Year
  Sex: Female

DRUGS (4)
  1. ZYPREXA [Suspect]
     Indication: MAJOR DEPRESSION
     Dosage: 10 MG
     Dates: end: 20060531
  2. CYMBALTA [Suspect]
     Indication: MAJOR DEPRESSION
     Dosage: 90 MG
  3. LAMICTAL [Concomitant]
  4. ATENOLOL [Concomitant]

REACTIONS (3)
  - DROOLING [None]
  - DYSARTHRIA [None]
  - POSTURE ABNORMAL [None]
